FAERS Safety Report 5071624-6 (Version None)
Quarter: 2006Q3

REPORT INFORMATION
  Report Type: 
  Country: None (occurrence: None)
  Receive Date: 20060803
  Receipt Date: 20060803
  Transmission Date: 20061208
  Serious: Yes (Hospitalization)
  Sender: FDA-Public Use
  Company Number: None

PATIENT
  Sex: Male
  Weight: 85.3 kg

DRUGS (1)
  1. TEMOZOLOMIDE [Suspect]
     Dosage: 4050 MG

REACTIONS (4)
  - GENERAL PHYSICAL HEALTH DETERIORATION [None]
  - LARGE INTESTINE PERFORATION [None]
  - REFUSAL OF TREATMENT BY RELATIVE [None]
  - SMALL INTESTINAL OBSTRUCTION [None]
